FAERS Safety Report 6650389-8 (Version None)
Quarter: 2010Q1

REPORT INFORMATION
  Report Type: 
  Country: None (occurrence: None)
  Receive Date: 20100322
  Receipt Date: 20100309
  Transmission Date: 20100710
  Serious: Yes (Other)
  Sender: FDA-Public Use
  Company Number: TRP_06841_2010

PATIENT
  Age: 64 Year
  Sex: Female

DRUGS (2)
  1. RIBAVIRIN [Suspect]
     Indication: HEPATITIS C
     Dosage: (1 DF 1X/WEEK)
  2. INTRON A [Suspect]
     Indication: HEPATITIS C
     Dosage: (1 DF 1X/WEEK)

REACTIONS (2)
  - LICHENOID KERATOSIS [None]
  - SKIN OEDEMA [None]
